FAERS Safety Report 5489974-8 (Version None)
Quarter: 2007Q4

REPORT INFORMATION
  Report Type: 
  Country: None (occurrence: None)
  Receive Date: 20071018
  Receipt Date: 20071015
  Transmission Date: 20080405
  Serious: Yes (Other)
  Sender: FDA-Public Use
  Company Number: JP-ABBOTT-07P-087-0420071-00

PATIENT
  Age: 15 Year
  Sex: Female
  Weight: 20 kg

DRUGS (6)
  1. SEVOFLURANE [Suspect]
     Indication: MAINTENANCE OF ANAESTHESIA
     Dosage: 1-1.5%
     Route: 055
  2. FENTANYL [Concomitant]
     Indication: INDUCTION OF ANAESTHESIA
     Dosage: 01 MG + 1.1 MG
     Route: 042
  3. FENTANYL [Concomitant]
     Indication: MAINTENANCE OF ANAESTHESIA
  4. MIDAZOLAM [Concomitant]
     Indication: INDUCTION OF ANAESTHESIA
     Route: 042
  5. VECURONIUM BROMIDE [Concomitant]
     Indication: ANAESTHESIA
     Route: 042
  6. ALPROSTADIL [Concomitant]
     Indication: DRUG USE FOR UNKNOWN INDICATION
     Dosage: 0.01-0.02 MCG/KG/MIN

REACTIONS (2)
  - CARBON DIOXIDE INCREASED [None]
  - MUSCULOSKELETAL STIFFNESS [None]
